FAERS Safety Report 20951354 (Version 1)
Quarter: 2022Q2

REPORT INFORMATION
  Report Type: Spontaneous
  Country: US (occurrence: None)
  Receive Date: 20220610
  Receipt Date: 20220610
  Transmission Date: 20220720
  Serious: No
  Sender: FDA-Public Use
  Company Number: None

PATIENT
  Age: 58 Year
  Sex: Female
  Weight: 81 kg

DRUGS (5)
  1. ANASTROZOLE [Suspect]
     Active Substance: ANASTROZOLE
     Indication: Breast cancer
     Dosage: FREQUENCY : DAILY;?
     Route: 048
  2. FINASTERIDE [Concomitant]
     Active Substance: FINASTERIDE
  3. NUTRAFOL [Concomitant]
  4. iron w/vitamin C [Concomitant]
  5. D3 with Calcium chews [Concomitant]

REACTIONS (3)
  - Alopecia [None]
  - Alopecia [None]
  - Drug ineffective [None]
